FAERS Safety Report 4341189-2 (Version None)
Quarter: 2004Q2

REPORT INFORMATION
  Report Type: 
  Country: None (occurrence: None)
  Receive Date: 20040419
  Receipt Date: 20040413
  Transmission Date: 20050107
  Serious: Yes (Hospitalization)
  Sender: FDA-Public Use
  Company Number: PHRM2004FR01510

PATIENT
  Age: 6 Year
  Sex: Male

DRUGS (7)
  1. AREDIA [Suspect]
     Indication: OSTEOGENESIS IMPERFECTA
     Dosage: 7 MG DAY 1, THEN 13 MG/DAY
     Route: 042
     Dates: start: 20001017, end: 20001020
  2. AREDIA [Suspect]
     Dosage: 15 MG/DAY
     Route: 042
     Dates: start: 20010221, end: 20010224
  3. AREDIA [Suspect]
     Route: 042
     Dates: start: 20010621
  4. AREDIA [Suspect]
     Route: 042
     Dates: start: 20011023
  5. AREDIA [Suspect]
     Route: 042
     Dates: start: 20020225, end: 20020227
  6. AREDIA [Suspect]
     Route: 042
     Dates: start: 20020710, end: 20020713
  7. AREDIA [Suspect]
     Dosage: 20 MG/DAY
     Route: 042
     Dates: start: 20040210, end: 20040211

REACTIONS (6)
  - BLOOD PRESSURE DECREASED [None]
  - EYELID OEDEMA [None]
  - NAUSEA [None]
  - PYREXIA [None]
  - RASH [None]
  - SOMNOLENCE [None]
